FAERS Safety Report 8443478-9 (Version None)
Quarter: 2012Q2

REPORT INFORMATION
  Report Type: 
  Country: None (occurrence: None)
  Receive Date: 20120618
  Receipt Date: 20120608
  Transmission Date: 20120825
  Serious: Yes (Other)
  Sender: FDA-Public Use
  Company Number: JP-JNJFOC-20120605288

PATIENT

DRUGS (1)
  1. FENTANYL-100 [Suspect]
     Indication: BACK PAIN
     Route: 062

REACTIONS (2)
  - COMA [None]
  - BEDRIDDEN [None]
